FAERS Safety Report 9843172 (Version 1)
Quarter: 2013Q4

REPORT INFORMATION
  Report Type: Spontaneous
  Country: US (occurrence: None)
  Receive Date: 20131219
  Receipt Date: 20131219
  Transmission Date: 20140711
  Serious: Yes (Death)
  Sender: FDA-Public Use
  Company Number: 163-20785-13023204

PATIENT
  Age: 59 Year
  Sex: Male

DRUGS (24)
  1. THALOMID (THALIDOMIDE) (100 MILLIGRAM, CAPSULES) [Suspect]
     Indication: PLASMA CELL MYELOMA
     Dosage: EXP DATE OF 31/SEP/2015 GIVEN - INVALID
     Route: 048
     Dates: start: 20130117, end: 2013
  2. CYCLOPHOSPHAMIDE [Concomitant]
  3. DEXAMETHASONE [Concomitant]
  4. AMLODIPINE [Concomitant]
  5. CARVEDILOL [Concomitant]
  6. CYCLOBENZAPRINE HCL (CYCLOBENZAPRINE HYDROCHLORIDE) [Concomitant]
  7. FUROSEMIDE [Concomitant]
  8. HEADACHE FORMULA (THOMAPYRIN N) [Concomitant]
  9. HYDRALAZINE HYDROCHLORIDE [Concomitant]
  10. HYDROCODONE/ACETAMINOPHEN (REMEDEINE) [Concomitant]
  11. OMEPRAZOLE [Concomitant]
  12. PAMIDRONATE DISODIUM [Concomitant]
  13. PROAIR HFA (SALBUTAMOL SULFATE) [Concomitant]
  14. RENAGEL (SEVELAMER HYDROCHLORIDE) [Concomitant]
  15. RENAL (NEPHROVITE) [Concomitant]
  16. RENVELA (SEVELAMER CARBONATE) [Concomitant]
  17. VITAMIN D (ERGOCALCIFEROL) [Concomitant]
  18. ZOLPIDEM TARTRATE [Concomitant]
  19. DESLORATADINE [Concomitant]
  20. MONTELUKAST SODIUM [Concomitant]
  21. METOCLOPRAMIDE HCL (METOCLOPRAMIDE HYDROCHLORIDE) [Concomitant]
  22. LISINOPRIL [Concomitant]
  23. ONDANSETRON HCL (ONDANSETRON HYDROCHLORIDE) [Concomitant]
  24. PROCHLORPERAZINE MALEATE [Concomitant]

REACTIONS (1)
  - Renal failure [None]
